FAERS Safety Report 21654016 (Version 1)
Quarter: 2022Q4

REPORT INFORMATION
  Report Type: Report from Study
  Country: US (occurrence: US)
  Receive Date: 20221129
  Receipt Date: 20221129
  Transmission Date: 20230113
  Serious: No
  Sender: FDA-Public Use
  Company Number: US-ABBVIE-22K-163-4472687-00

PATIENT
  Age: 44 Year
  Sex: Female

DRUGS (1)
  1. LUPRON [Suspect]
     Active Substance: LEUPROLIDE ACETATE
     Indication: Endometriosis
     Dosage: DURATION TEXT: 4-6 MONTHS
     Route: 065
     Dates: start: 2019

REACTIONS (3)
  - Acne [Unknown]
  - Abdominal pain upper [Unknown]
  - Mood swings [Unknown]
